FAERS Safety Report 9236230 (Version 1)
Quarter: 2013Q2

REPORT INFORMATION
  Report Type: Spontaneous
  Country: US (occurrence: None)
  Receive Date: 20130416
  Receipt Date: 20130416
  Transmission Date: 20140414
  Serious: Yes (Other)
  Sender: FDA-Public Use
  Company Number: None

PATIENT
  Age: 64 Year
  Sex: Female
  Weight: 92.99 kg

DRUGS (1)
  1. LISINOPRIL/HCTZ [Suspect]
     Indication: HYPERTENSION

REACTIONS (5)
  - Swelling face [None]
  - Local swelling [None]
  - Swollen tongue [None]
  - Speech disorder [None]
  - Lip pain [None]
